FAERS Safety Report 4871419-X (Version None)
Quarter: 2006Q1

REPORT INFORMATION
  Report Type: 
  Country: None (occurrence: None)
  Receive Date: 20060103
  Receipt Date: 20051005
  Transmission Date: 20060701
  Serious: Yes (Hospitalization, Disabling)
  Sender: FDA-Public Use
  Company Number: US-MERCK-0510USA04682

PATIENT
  Age: 62 Year
  Sex: Male
  Weight: 78 kg

DRUGS (1)
  1. VIOXX [Suspect]
     Indication: ARTHRITIS
     Route: 048
     Dates: start: 19990201, end: 20040201

REACTIONS (7)
  - ACUTE CORONARY SYNDROME [None]
  - BLOOD CHOLESTEROL INCREASED [None]
  - CORONARY ARTERY DISEASE [None]
  - GASTROINTESTINAL HAEMORRHAGE [None]
  - GLUCOSE TOLERANCE IMPAIRED [None]
  - MYOCARDIAL INFARCTION [None]
  - OVERDOSE [None]
